FAERS Safety Report 4652564-0 (Version None)
Quarter: 2005Q2

REPORT INFORMATION
  Report Type: 
  Country: None (occurrence: None)
  Receive Date: 20050502
  Receipt Date: 20050422
  Transmission Date: 20051028
  Serious: Yes (Death)
  Sender: FDA-Public Use
  Company Number: 200511069GDS

PATIENT
  Age: 78 Year
  Sex: Female

DRUGS (10)
  1. ASPIRIN [Suspect]
     Dosage: 100 MG, QD, ORAL
     Route: 048
     Dates: end: 20050401
  2. NITROGLYCERIN [Concomitant]
  3. TORSEMIDE [Concomitant]
  4. MAGNESIUM CITRATE [Concomitant]
  5. AMIODARONE HCL [Concomitant]
  6. OXAZEPAM [Concomitant]
  7. ACETAMINOPHEN [Concomitant]
  8. METOPROLOL TARTRATE [Concomitant]
  9. FUROSEMIDE [Concomitant]
  10. ENALAPRIL MALEATE [Concomitant]

REACTIONS (1)
  - CEREBRAL HAEMORRHAGE [None]
